FAERS Safety Report 5478295-5 (Version None)
Quarter: 2007Q4

REPORT INFORMATION
  Report Type: 
  Country: None (occurrence: None)
  Receive Date: 20071005
  Receipt Date: 20070924
  Transmission Date: 20080405
  Serious: Yes (Congenital Anomaly)
  Sender: FDA-Public Use
  Company Number: 8-99225-148A

PATIENT
  Sex: Female

DRUGS (1)
  1. NORPLANT SYSTEM [Suspect]
     Indication: CONTRACEPTION
     Dosage: UNKNOWN
     Route: 058
     Dates: start: 19940428, end: 19970508

REACTIONS (10)
  - ANAL ATRESIA [None]
  - COLONIC FISTULA [None]
  - CONGENITAL GENITAL MALFORMATION [None]
  - CONGENITAL HIP DEFORMITY [None]
  - CONGENITAL UTERINE ANOMALY [None]
  - INTESTINAL ATRESIA [None]
  - RENAL APLASIA [None]
  - SPINA BIFIDA [None]
  - TALIPES [None]
  - UTERINE FISTULA [None]
